FAERS Safety Report 6062204-4 (Version None)
Quarter: 2009Q1

REPORT INFORMATION
  Report Type: 
  Country: None (occurrence: None)
  Receive Date: 20090203
  Receipt Date: 20090123
  Transmission Date: 20090719
  Serious: No
  Sender: FDA-Public Use
  Company Number: US-JNJFOC-20090105498

PATIENT
  Sex: Female
  Weight: 83.92 kg

DRUGS (10)
  1. FENTANYL TRANSDERMAL SYSTEM [Suspect]
     Indication: ARTHRALGIA
     Route: 062
  2. FENTANYL TRANSDERMAL SYSTEM [Suspect]
     Indication: BACK PAIN
     Route: 062
  3. CYMBALTA [Concomitant]
     Indication: DEPRESSION
     Route: 048
  4. AMBIEN [Concomitant]
     Indication: INSOMNIA
     Route: 048
  5. LOVAZA [Concomitant]
     Indication: NUTRITIONAL SUPPORT
     Dosage: 16 M
     Route: 048
  6. ASCORBIC ACID [Concomitant]
     Indication: NUTRITIONAL SUPPORT
     Route: 065
  7. FOLIC ACID SUPPLEMENT [Concomitant]
     Indication: NUTRITIONAL SUPPORT
     Route: 065
  8. VITAMIN B COMPLEX CAP [Concomitant]
     Indication: NUTRITIONAL SUPPORT
     Dosage: UNSPECIFIED DOSE DAILY
     Route: 065
  9. CALCIUM WITH VITAMIN D [Concomitant]
     Indication: NUTRITIONAL SUPPORT
     Route: 065
  10. UNKNOWN MEDICATIONS [Concomitant]
     Route: 065

REACTIONS (3)
  - EYELID OEDEMA [None]
  - INADEQUATE ANALGESIA [None]
  - WRONG TECHNIQUE IN DRUG USAGE PROCESS [None]
